FAERS Safety Report 5013823-5 (Version None)
Quarter: 2006Q2

REPORT INFORMATION
  Report Type: 
  Country: None (occurrence: None)
  Receive Date: 20060525
  Receipt Date: 20060516
  Transmission Date: 20061013
  Serious: Yes (Hospitalization)
  Sender: FDA-Public Use
  Company Number: 2006056083

PATIENT
  Age: 77 Year
  Sex: Female

DRUGS (9)
  1. GENOTROPIN [Suspect]
     Indication: HYPOPITUITARISM
     Dosage: 0.4 MG (0.4 MG, DAILY), UNKNOWN
     Route: 065
     Dates: start: 19971001
  2. LASIX [Concomitant]
  3. K CL TAB [Concomitant]
  4. AMILORIDE          (AMILORIDE) [Concomitant]
  5. LEVOTHYROXINE SODIUM [Concomitant]
  6. INSULIN [Concomitant]
  7. PLENDIL [Concomitant]
  8. KALCIPOS (CALCIUM CARBONATE) [Concomitant]
  9. HYDROCORTISONE [Concomitant]

REACTIONS (4)
  - ARRHYTHMIA SUPRAVENTRICULAR [None]
  - HYPOKALAEMIA [None]
  - PALPITATIONS [None]
  - TACHYCARDIA [None]
